FAERS Safety Report 4805926-2 (Version None)
Quarter: 2005Q4

REPORT INFORMATION
  Report Type: 
  Country: None (occurrence: None)
  Receive Date: 20051019
  Receipt Date: 20051014
  Transmission Date: 20060501
  Serious: Yes (Hospitalization)
  Sender: FDA-Public Use
  Company Number: 27721

PATIENT
  Age: 104 Year
  Sex: Male

DRUGS (6)
  1. DISCOTRINE (GLYCERYL TRINITRATE) [Suspect]
     Dosage: 10 MG (10 MG, 1 IN 1 DAY (S) ) TRANSDERMAL
     Route: 062
     Dates: end: 20050924
  2. ALDACTONE [Suspect]
     Dosage: 25 MG
     Dates: end: 20050924
  3. ATROVENT [Suspect]
     Dosage: 120 MCG
     Dates: end: 20050924
  4. XATRAL (ALFUZOSIN) [Suspect]
     Dosage: 10 MG ORAL
     Route: 048
     Dates: end: 20050924
  5. LOVENOX [Suspect]
     Dosage: 40 MG (1 DOSAGE FORMS, 1 IN 1 DAY (S) )
     Route: 030
     Dates: end: 20050924
  6. OXEOL                   (BAMBUTEROL HYDROCHLORIDE) [Suspect]
     Dosage: 10 MG ORAL
     Route: 048
     Dates: end: 20050924

REACTIONS (3)
  - INTESTINAL OBSTRUCTION [None]
  - MUSCLE HAEMORRHAGE [None]
  - VOMITING [None]
